FAERS Safety Report 22627990 (Version 1)
Quarter: 2023Q2

REPORT INFORMATION
  Report Type: Spontaneous
  Country: US (occurrence: US)
  Receive Date: 20230622
  Receipt Date: 20230622
  Transmission Date: 20230722
  Serious: Yes (Other)
  Sender: FDA-Public Use
  Company Number: US-ALVOGEN-2023091444

PATIENT
  Age: 84 Year
  Sex: Male
  Weight: 83 kg

DRUGS (15)
  1. LENALIDOMIDE [Suspect]
     Active Substance: LENALIDOMIDE
     Indication: Plasma cell myeloma
     Dosage: REFILL, NO CHANGES.
     Route: 048
     Dates: start: 20221212, end: 20230207
  2. LENALIDOMIDE [Suspect]
     Active Substance: LENALIDOMIDE
     Indication: Plasma cell myeloma
     Route: 048
     Dates: start: 20230207
  3. LENALIDOMIDE [Suspect]
     Active Substance: LENALIDOMIDE
     Indication: Plasma cell myeloma
     Dosage: FREQUENCY: 21/7
     Route: 048
     Dates: start: 20220124
  4. HYDROCHLOROTHIAZIDE [Concomitant]
     Active Substance: HYDROCHLOROTHIAZIDE
     Indication: Product used for unknown indication
     Route: 048
     Dates: start: 20220105
  5. ATORVASTATIN CALCIUM [Concomitant]
     Active Substance: ATORVASTATIN CALCIUM
     Indication: Product used for unknown indication
     Route: 048
     Dates: start: 20220105
  6. LOSARTAN POTASSIUM [Concomitant]
     Active Substance: LOSARTAN POTASSIUM
     Indication: Product used for unknown indication
     Route: 048
     Dates: start: 20220105
  7. Advair Diskus Inhalation Aeroslol [Concomitant]
     Indication: Product used for unknown indication
     Dosage: 250-50 INHALATION DAILY
     Route: 055
     Dates: start: 20220105
  8. ALBUTEROL SULFATE [Concomitant]
     Active Substance: ALBUTEROL SULFATE
     Indication: Product used for unknown indication
     Dosage: 108 (90 BASE), AS NEEDED.
     Route: 055
     Dates: start: 20220105
  9. COENZYME Q10 [Concomitant]
     Active Substance: DIETARY SUPPLEMENT\UBIDECARENONE
     Indication: Product used for unknown indication
     Route: 048
     Dates: start: 20220113
  10. Multivitamin Men 50+ [Concomitant]
     Indication: Product used for unknown indication
     Route: 048
     Dates: start: 20220113
  11. VITAMIN B12 [Concomitant]
     Active Substance: CYANOCOBALAMIN
     Indication: Product used for unknown indication
     Route: 048
     Dates: start: 20220113
  12. IRON [Concomitant]
     Active Substance: IRON
     Indication: Product used for unknown indication
     Route: 048
     Dates: start: 20220113
  13. Osteo Bi-Flex Triple Srength [Concomitant]
     Indication: Product used for unknown indication
     Route: 048
     Dates: start: 20220113
  14. Probiotic (Lactobacillus) [Concomitant]
     Indication: Product used for unknown indication
     Route: 048
     Dates: start: 20220113
  15. FLUZONE HIGH-DOSE QUADRIVALENT [Concomitant]
     Active Substance: INFLUENZA A VIRUS A/MICHIGAN/45/2015 X-275 (H1N1) ANTIGEN (FORMALDEHYDE INACTIVATED)\INFLUENZA A VIR
     Indication: Product used for unknown indication
     Dosage: OK TO SHIP
     Route: 030
     Dates: start: 20221019

REACTIONS (1)
  - Thrombocytopenia [Recovered/Resolved]

NARRATIVE: CASE EVENT DATE: 20230102
